FAERS Safety Report 20523535 (Version 2)
Quarter: 2022Q1

REPORT INFORMATION
  Report Type: Spontaneous
  Country: JP (occurrence: JP)
  Receive Date: 20220228
  Receipt Date: 20220330
  Transmission Date: 20220424
  Serious: Yes (Other)
  Sender: FDA-Public Use
  Company Number: JP-SUN PHARMACEUTICAL INDUSTRIES LTD-2022RR-328151

PATIENT
  Age: 85 Year
  Sex: Male

DRUGS (4)
  1. ASPIRIN [Suspect]
     Active Substance: ASPIRIN
     Indication: Myocardial infarction
     Dosage: UNK
     Route: 065
  2. ASPIRIN [Suspect]
     Active Substance: ASPIRIN
     Indication: Atrial fibrillation
  3. EDOXABAN [Suspect]
     Active Substance: EDOXABAN
     Indication: Myocardial infarction
     Dosage: UNK
     Route: 065
  4. EDOXABAN [Suspect]
     Active Substance: EDOXABAN
     Indication: Atrial fibrillation

REACTIONS (5)
  - Disease recurrence [Unknown]
  - Dyspnoea [Unknown]
  - Haemothorax [Unknown]
  - Haematuria [Unknown]
  - Bladder tamponade [Unknown]
